FAERS Safety Report 17043916 (Version 1)
Quarter: 2019Q4

REPORT INFORMATION
  Report Type: Spontaneous
  Country: US (occurrence: US)
  Receive Date: 20191115
  Receipt Date: 20191115
  Transmission Date: 20200122
  Serious: Yes (Hospitalization)
  Sender: FDA-Public Use
  Company Number: None

PATIENT
  Age: 78 Year
  Sex: Female
  Weight: 80.55 kg

DRUGS (11)
  1. LEVOTHYROXINE. [Concomitant]
     Active Substance: LEVOTHYROXINE
     Dates: start: 20190509
  2. DIAZEPAM. [Concomitant]
     Active Substance: DIAZEPAM
     Dates: start: 20180101
  3. VALSARTAN AND HYDROCHLOROTHIAZIDE [Concomitant]
     Active Substance: HYDROCHLOROTHIAZIDE\VALSARTAN
  4. CYANOCOBALAMIN. [Concomitant]
     Active Substance: CYANOCOBALAMIN
     Dates: start: 20190214
  5. METOPROLOL. [Concomitant]
     Active Substance: METOPROLOL
     Dates: start: 20160101
  6. ASPIRIN. [Concomitant]
     Active Substance: ASPIRIN
     Dates: start: 20160101
  7. AMLOPINE [Concomitant]
     Active Substance: AMLODIPINE BESYLATE
     Dates: start: 20190629
  8. REPATHA [Suspect]
     Active Substance: EVOLOCUMAB
     Indication: DYSLIPIDAEMIA
     Dosage: ?          OTHER FREQUENCY:ONCE EVERY 2 WEEKS;?
     Route: 058
     Dates: start: 20190605, end: 20190605
  9. INSULIN [Concomitant]
     Active Substance: INSULIN NOS
     Dates: start: 20190626
  10. FLONASE [Concomitant]
     Active Substance: FLUTICASONE PROPIONATE
     Dates: start: 20190306
  11. VITAMIN D3 [Concomitant]
     Active Substance: CHOLECALCIFEROL
     Dates: start: 20180101

REACTIONS (4)
  - Coronary artery stenosis [None]
  - Hyponatraemia [None]
  - Influenza like illness [None]
  - Blood glucose increased [None]

NARRATIVE: CASE EVENT DATE: 20190626
